FAERS Safety Report 5612107-1 (Version None)
Quarter: 2008Q1

REPORT INFORMATION
  Report Type: 
  Country: None (occurrence: None)
  Receive Date: 20080204
  Receipt Date: 20080130
  Transmission Date: 20080703
  Serious: Yes (Death)
  Sender: FDA-Public Use
  Company Number: IL-BRISTOL-MYERS SQUIBB COMPANY-14055263

PATIENT
  Age: 17 Year
  Sex: Male

DRUGS (10)
  1. DASATINIB [Suspect]
     Indication: ACUTE LYMPHOCYTIC LEUKAEMIA
     Route: 048
     Dates: start: 20071001, end: 20080101
  2. ACYCLOVIR [Concomitant]
  3. TAZOCIN [Concomitant]
  4. CELLCEPT [Concomitant]
  5. PREDNISONE TAB [Concomitant]
  6. RECITAL [Concomitant]
  7. VABEN [Concomitant]
  8. MORPHINE [Concomitant]
  9. LASIX [Concomitant]
  10. DIFLUCAN [Concomitant]

REACTIONS (4)
  - CYTOMEGALOVIRUS INFECTION [None]
  - ESCHERICHIA SEPSIS [None]
  - LUNG INFILTRATION [None]
  - RESPIRATORY SYNCYTIAL VIRUS INFECTION [None]
